FAERS Safety Report 7491273-X (Version None)
Quarter: 2011Q2

REPORT INFORMATION
  Report Type: 
  Country: None (occurrence: None)
  Receive Date: 20110519
  Receipt Date: 20110511
  Transmission Date: 20111010
  Serious: Yes (Other)
  Sender: FDA-Public Use
  Company Number: A0927782A

PATIENT
  Age: 25 Year
  Sex: Female

DRUGS (3)
  1. COMBIVIR [Suspect]
     Indication: ANTIVIRAL TREATMENT
     Dosage: 2TAB PER DAY
     Route: 048
     Dates: start: 20100309
  2. ANTI-VIRAL MEDICATION [Suspect]
     Indication: ANTIVIRAL TREATMENT
     Dosage: 1000MGD PER DAY
     Route: 065
  3. KALETRA [Suspect]
     Indication: ANTIVIRAL TREATMENT
     Dosage: 4TAB PER DAY
     Route: 048
     Dates: start: 20100309

REACTIONS (2)
  - STILLBIRTH [None]
  - DRUG EXPOSURE DURING PREGNANCY [None]
